FAERS Safety Report 17538444 (Version 1)
Quarter: 2020Q1

REPORT INFORMATION
  Report Type: Spontaneous
  Country: US (occurrence: US)
  Receive Date: 20200305
  Receipt Date: 20200305
  Transmission Date: 20200409
  Serious: Yes (Hospitalization)
  Sender: FDA-Public Use
  Company Number: None

PATIENT
  Age: 26 Year
  Sex: Male

DRUGS (1)
  1. TAFINLAR [Suspect]
     Active Substance: DABRAFENIB MESYLATE
     Route: 048
     Dates: start: 20200131

REACTIONS (4)
  - Vomiting [None]
  - Nausea [None]
  - Therapy cessation [None]
  - Transient ischaemic attack [None]

NARRATIVE: CASE EVENT DATE: 20200224
